FAERS Safety Report 9095055 (Version 1)
Quarter: 2013Q1

REPORT INFORMATION
  Report Type: Spontaneous
  Country: US (occurrence: None)
  Receive Date: 20130215
  Receipt Date: 20130215
  Transmission Date: 20140127
  Serious: No
  Sender: FDA-Public Use
  Company Number: None

PATIENT
  Age: 74 Year
  Sex: Female
  Weight: 81.65 kg

DRUGS (1)
  1. SIMVASTATIN, 40 MG, UNKNOWN MANUFACTURER [Suspect]
     Indication: BLOOD CHOLESTEROL INCREASED
     Dosage: ONCE AT NIGHT
     Route: 048
     Dates: end: 201211

REACTIONS (4)
  - Amnesia [None]
  - Feeling abnormal [None]
  - Disturbance in attention [None]
  - Visual impairment [None]
